FAERS Safety Report 6758228-1 (Version None)
Quarter: 2010Q2

REPORT INFORMATION
  Report Type: 
  Country: None (occurrence: None)
  Receive Date: 20100607
  Receipt Date: 20100528
  Transmission Date: 20101027
  Serious: Yes (Hospitalization, Other)
  Sender: FDA-Public Use
  Company Number: US-RB-009010-10

PATIENT
  Sex: Male

DRUGS (3)
  1. SUBOXONE [Suspect]
     Route: 060
     Dates: start: 20090501
  2. TEGRETOL [Concomitant]
     Dosage: UNKNOWN DOSING DETAILS
     Route: 065
  3. DILANTIN [Concomitant]
     Dosage: UNKNOWN DOSING DETAILS
     Route: 065

REACTIONS (3)
  - CONVULSION [None]
  - DRUG WITHDRAWAL SYNDROME [None]
  - MENTAL DISORDER [None]
